FAERS Safety Report 6860128-3 (Version None)
Quarter: 2010Q3

REPORT INFORMATION
  Report Type: 
  Country: None (occurrence: None)
  Receive Date: 20100720
  Receipt Date: 20100709
  Transmission Date: 20110219
  Serious: Yes (Disabling, Other)
  Sender: FDA-Public Use
  Company Number: US-PFIZER INC-2010058707

PATIENT
  Sex: Male
  Weight: 73 kg

DRUGS (1)
  1. ZOLOFT [Suspect]
     Indication: SOCIAL PHOBIA
     Dosage: 50MG DAILY WITH AN ADDITIONAL HALF TABLET AS NEEDED
     Dates: end: 20100401

REACTIONS (6)
  - ALCOHOL USE [None]
  - BIPOLAR DISORDER [None]
  - OVERDOSE [None]
  - PANIC ATTACK [None]
  - SCHIZOPHRENIA [None]
  - SUICIDAL IDEATION [None]
